FAERS Safety Report 18428523 (Version 1)
Quarter: 2020Q4

REPORT INFORMATION
  Report Type: Spontaneous
  Country: US (occurrence: US)
  Receive Date: 20201026
  Receipt Date: 20201026
  Transmission Date: 20210114
  Serious: No
  Sender: FDA-Public Use
  Company Number: US-ELI_LILLY_AND_COMPANY-US202010005330

PATIENT
  Sex: Female

DRUGS (2)
  1. REYVOW [Suspect]
     Active Substance: LASMIDITAN
     Dosage: 50 MG
     Route: 065
  2. REYVOW [Suspect]
     Active Substance: LASMIDITAN
     Indication: HEADACHE
     Dosage: 100 MG
     Route: 065

REACTIONS (3)
  - Feeling drunk [Recovered/Resolved]
  - Sedation [Recovered/Resolved]
  - Drug ineffective [Unknown]
